FAERS Safety Report 19888060 (Version 1)
Quarter: 2021Q3

REPORT INFORMATION
  Report Type: Spontaneous
  Country: US (occurrence: US)
  Receive Date: 20210927
  Receipt Date: 20210927
  Transmission Date: 20211014
  Serious: No
  Sender: FDA-Public Use
  Company Number: None

PATIENT
  Sex: Female
  Weight: 99.34 kg

DRUGS (17)
  1. TAFINLAR [Suspect]
     Active Substance: DABRAFENIB MESYLATE
     Indication: MALIGNANT MELANOMA
     Dosage: ?          OTHER FREQUENCY:BID WITHOUT FOOD;?
     Route: 048
  2. FLUOXETINE [Concomitant]
     Active Substance: FLUOXETINE HYDROCHLORIDE
  3. MULTIVITAMIN [Concomitant]
     Active Substance: VITAMINS
  4. MELOXICAM. [Concomitant]
     Active Substance: MELOXICAM
  5. VITAMINS NOS [Concomitant]
     Active Substance: VITAMINS
  6. YEAST EXTRACT [Concomitant]
     Active Substance: YEAST
  7. GABAPENTIN. [Concomitant]
     Active Substance: GABAPENTIN
  8. LACTULOSE. [Concomitant]
     Active Substance: LACTULOSE
  9. FUROSEMIDE. [Concomitant]
     Active Substance: FUROSEMIDE
  10. VITAMIN B12 [Concomitant]
     Active Substance: CYANOCOBALAMIN
  11. VITAMIN C [Concomitant]
     Active Substance: ASCORBIC ACID
  12. MEKINIST [Suspect]
     Active Substance: TRAMETINIB DIMETHYL SULFOXIDE
     Indication: MALIGNANT MELANOMA
     Dosage: ?          OTHER FREQUENCY:QD WITHOUT FOOD;?
     Route: 048
  13. AMLODIPINE [Concomitant]
     Active Substance: AMLODIPINE BESYLATE
  14. TRAMADOL. [Concomitant]
     Active Substance: TRAMADOL
  15. ZINC GLUCONATE [Concomitant]
     Active Substance: ZINC GLUCONATE
  16. ALPRAZOLAM. [Concomitant]
     Active Substance: ALPRAZOLAM
  17. HYDROXYZINE [Concomitant]
     Active Substance: HYDROXYZINE HYDROCHLORIDE

REACTIONS (1)
  - Peripheral swelling [None]
